FAERS Safety Report 6225520-9 (Version None)
Quarter: 2009Q2

REPORT INFORMATION
  Report Type: 
  Country: None (occurrence: None)
  Receive Date: 20090612
  Receipt Date: 20090423
  Transmission Date: 20091009
  Serious: No
  Sender: FDA-Public Use
  Company Number: US-ABBOTT-09P-163-0569475-00

PATIENT
  Sex: Male

DRUGS (4)
  1. HUMIRA [Suspect]
     Indication: CROHN'S DISEASE
     Dosage: LOADING DOSE
     Dates: start: 20090210, end: 20090210
  2. HUMIRA [Suspect]
     Dosage: DAY 15
     Dates: start: 20090224, end: 20090224
  3. HUMIRA [Suspect]
     Dosage: DAY 29
     Dates: start: 20090310
  4. ROWASA [Concomitant]
     Indication: DRUG USE FOR UNKNOWN INDICATION
     Dosage: ENEMAS ONE EVERY NIGHT AS NEEDED

REACTIONS (2)
  - INJECTION SITE ERYTHEMA [None]
  - INJECTION SITE SWELLING [None]
